FAERS Safety Report 11114943 (Version 1)
Quarter: 2015Q2

REPORT INFORMATION
  Report Type: Spontaneous
  Country: US (occurrence: None)
  Receive Date: 20150513
  Receipt Date: 20150513
  Transmission Date: 20150821
  Serious: Yes (Death)
  Sender: FDA-Public Use
  Company Number: INS201505-000170

PATIENT
  Age: 52 Year
  Sex: Male
  Weight: 77.11 kg

DRUGS (1)
  1. SUBSYS [Suspect]
     Active Substance: FENTANYL
     Indication: BREAKTHROUGH PAIN
     Dosage: 800 MCG, 120 UNITS
     Dates: start: 201501

REACTIONS (1)
  - Hallucination [None]
